FAERS Safety Report 5076416-X (Version None)
Quarter: 2006Q3

REPORT INFORMATION
  Report Type: 
  Country: None (occurrence: None)
  Receive Date: 20060807
  Receipt Date: 20060719
  Transmission Date: 20061208
  Serious: Yes (Hospitalization)
  Sender: FDA-Public Use
  Company Number: DE_051017139

PATIENT
  Age: 52 Year
  Sex: Female
  Weight: 53 kg

DRUGS (4)
  1. F1J-MC-HMDI RECURRENCE PREVENTION (DULOXETINE HYDROCHLORIDE)CAPSULE [Suspect]
     Indication: DEPRESSION
     Dosage: 60 MG, ORAL
     Route: 048
     Dates: start: 20051005
  2. LEVOTHYROXINE SODIUM [Concomitant]
  3. GYNOKADIN (ESTRADIOL VALERATE) [Concomitant]
  4. CEDAX [Concomitant]

REACTIONS (3)
  - PHARYNGOLARYNGEAL PAIN [None]
  - SENSATION OF FOREIGN BODY [None]
  - THROAT TIGHTNESS [None]
